FAERS Safety Report 7557311-0 (Version None)
Quarter: 2011Q2

REPORT INFORMATION
  Report Type: 
  Country: None (occurrence: None)
  Receive Date: 20110620
  Receipt Date: 20090630
  Transmission Date: 20111010
  Serious: Yes (Death)
  Sender: FDA-Public Use
  Company Number: PHHY2009DE68654

PATIENT
  Sex: Female
  Weight: 82 kg

DRUGS (7)
  1. HYDROCORTISONE [Concomitant]
  2. SANDOSTATIN LAR [Suspect]
     Indication: ACROMEGALY
     Dosage: 30 MG, UNK
     Route: 030
     Dates: start: 20090201
  3. CONJUGATED ESTROGENS [Concomitant]
     Dosage: 28 UNK,
  4. LEVOTHYROXINE SODIUM [Concomitant]
     Dosage: 75 UNK,
  5. INSULIN [Concomitant]
  6. SOMAVERT [Concomitant]
     Dosage: 1 DF, WEEKLY
  7. METOPROLOL TARTRATE [Concomitant]
     Dosage: 95 MG, TWICE DAILY

REACTIONS (1)
  - DEATH [None]
